FAERS Safety Report 10685058 (Version 1)
Quarter: 2014Q4

REPORT INFORMATION
  Report Type: Spontaneous
  Country: US (occurrence: None)
  Receive Date: 20141230
  Receipt Date: 20141230
  Transmission Date: 20150529
  Serious: Yes (Other)
  Sender: FDA-Public Use
  Company Number: None

PATIENT
  Age: 57 Year
  Sex: Female
  Weight: 59.88 kg

DRUGS (2)
  1. ACETAMINOPHEN 500 MG 227 [Suspect]
     Active Substance: ACETAMINOPHEN
     Indication: BACK PAIN
     Dosage: 1-2 PILLS, AS NEEDED, TAKEN BY MOUTH
     Route: 048
     Dates: start: 20141202, end: 20141228
  2. ACETAMINOPHEN 500 MG 227 [Suspect]
     Active Substance: ACETAMINOPHEN
     Indication: HEADACHE
     Dosage: 1-2 PILLS, AS NEEDED, TAKEN BY MOUTH
     Route: 048
     Dates: start: 20141202, end: 20141228

REACTIONS (4)
  - Heart rate irregular [None]
  - Product contamination chemical [None]
  - Tachycardia [None]
  - No reaction on previous exposure to drug [None]

NARRATIVE: CASE EVENT DATE: 20141228
